FAERS Safety Report 11196351 (Version 1)
Quarter: 2015Q2

REPORT INFORMATION
  Report Type: Spontaneous
  Country: FR (occurrence: FR)
  Receive Date: 20150617
  Receipt Date: 20150617
  Transmission Date: 20150821
  Serious: Yes (Hospitalization)
  Sender: FDA-Public Use
  Company Number: FR-PFIZER INC-2015199004

PATIENT
  Age: 35 Year
  Sex: Female

DRUGS (3)
  1. XANAX [Suspect]
     Active Substance: ALPRAZOLAM
     Dosage: 2 DF, SINGLE
     Route: 048
     Dates: start: 20150525, end: 20150525
  2. DONORMYL /00334102/ [Suspect]
     Active Substance: DOXYLAMINE SUCCINATE
     Dosage: 2 DF, SINGLE
     Route: 048
     Dates: start: 20150525, end: 20150525
  3. EFFERALGAN CODEINE [Suspect]
     Active Substance: ACETAMINOPHEN\CODEINE PHOSPHATE
     Dosage: ONE TUBE, SINGLE
     Route: 048
     Dates: start: 20150525, end: 20150525

REACTIONS (1)
  - Toxicity to various agents [Recovered/Resolved]

NARRATIVE: CASE EVENT DATE: 20150525
